FAERS Safety Report 6254383-0 (Version None)
Quarter: 2009Q3

REPORT INFORMATION
  Report Type: 
  Country: None (occurrence: None)
  Receive Date: 20090702
  Receipt Date: 20090623
  Transmission Date: 20100115
  Serious: Yes (Other)
  Sender: FDA-Public Use
  Company Number: US-BIOGENIDEC-2008BI034904

PATIENT
  Age: 47 Year
  Sex: Female
  Weight: 83 kg

DRUGS (16)
  1. TYSABRI [Suspect]
     Indication: MULTIPLE SCLEROSIS
     Route: 042
     Dates: start: 20081114, end: 20081201
  2. TYSABRI [Suspect]
     Route: 042
     Dates: start: 20090401
  3. TOPAMAX [Concomitant]
     Indication: CONVULSION
     Dates: start: 20090201
  4. EFFEXOR [Concomitant]
     Indication: MULTIPLE SCLEROSIS RELAPSE
     Route: 048
     Dates: start: 20080301
  5. TRILEPTAL [Concomitant]
     Indication: CONVULSION
     Dates: start: 20070101
  6. AMITIZA [Concomitant]
     Indication: DRUG USE FOR UNKNOWN INDICATION
     Route: 048
  7. BETASERON [Concomitant]
     Indication: MULTIPLE SCLEROSIS
     Route: 058
  8. COLACE [Concomitant]
     Indication: DRUG USE FOR UNKNOWN INDICATION
     Route: 048
  9. DIAZEPAM [Concomitant]
     Indication: DRUG USE FOR UNKNOWN INDICATION
     Route: 048
  10. FLOMAX [Concomitant]
     Indication: NEUROGENIC BLADDER
     Route: 048
  11. LEVOTHYROXINE SODIUM [Concomitant]
     Indication: DRUG USE FOR UNKNOWN INDICATION
     Route: 048
  12. MAXALT [Concomitant]
     Indication: DRUG USE FOR UNKNOWN INDICATION
     Route: 048
  13. METOPROLOL TARTRATE [Concomitant]
     Indication: DRUG USE FOR UNKNOWN INDICATION
     Route: 048
  14. PROVIGIL [Concomitant]
     Indication: DRUG USE FOR UNKNOWN INDICATION
     Route: 048
  15. TEMAZEPAM [Concomitant]
     Indication: DRUG USE FOR UNKNOWN INDICATION
     Route: 048
  16. TOPAMAX [Concomitant]
     Route: 048

REACTIONS (13)
  - ATAXIA [None]
  - BRAIN OEDEMA [None]
  - COGNITIVE DISORDER [None]
  - COMPLEX PARTIAL SEIZURES [None]
  - DEPRESSION [None]
  - FATIGUE [None]
  - FEELING ABNORMAL [None]
  - MULTIPLE SCLEROSIS [None]
  - MULTIPLE SCLEROSIS RELAPSE [None]
  - NEUROGENIC BLADDER [None]
  - RADICULITIS [None]
  - SINUS DISORDER [None]
  - SINUSITIS [None]
